FAERS Safety Report 9921196 (Version 1)
Quarter: 2014Q1

REPORT INFORMATION
  Report Type: Spontaneous
  Country: US (occurrence: None)
  Receive Date: 20140221
  Receipt Date: 20140221
  Transmission Date: 20141002
  Serious: Yes (Life-Threatening)
  Sender: FDA-Public Use
  Company Number: None

PATIENT
  Age: 62 Year
  Sex: Female
  Weight: 67.13 kg

DRUGS (1)
  1. LIDOCAINE [Suspect]
     Indication: ENDODONTIC PROCEDURE
     Dosage: A SERIES OF SHOTS
     Dates: start: 20131030

REACTIONS (2)
  - Back pain [None]
  - Heart rate increased [None]
